FAERS Safety Report 19060595 (Version 2)
Quarter: 2021Q2

REPORT INFORMATION
  Report Type: Spontaneous
  Country: MY (occurrence: MY)
  Receive Date: 20210326
  Receipt Date: 20210403
  Transmission Date: 20210717
  Serious: Yes (Hospitalization, Other)
  Sender: FDA-Public Use
  Company Number: MY-CIPLA (EU) LIMITED-2021MY02198

PATIENT

DRUGS (8)
  1. METFORMIN [Concomitant]
     Active Substance: METFORMIN HYDROCHLORIDE
     Indication: TYPE 2 DIABETES MELLITUS
     Dosage: 1 GRAM, BID
     Route: 065
  2. SALBUTAMOL [Suspect]
     Active Substance: ALBUTEROL
     Indication: ASTHMA
     Dosage: 2 DOSAGE FORM, PRN (AS NECESSARY), 2 PUFFS
     Route: 055
     Dates: start: 202010, end: 202010
  3. SALBUTAMOL [Suspect]
     Active Substance: ALBUTEROL
     Dosage: 1600 MICROGRAM, METERED?DOSE INHALER
     Route: 055
     Dates: start: 202010, end: 202010
  4. SALBUTAMOL [Suspect]
     Active Substance: ALBUTEROL
     Dosage: 4 DOSAGE FORM, QID, 4 PUFFS MDI FOR 3 DAYS
     Route: 055
     Dates: start: 20201029, end: 20201029
  5. SALBUTAMOL [Suspect]
     Active Substance: ALBUTEROL
     Dosage: 2 DOSAGE FORM, QID, 2 PUFFS 6 HOURLY MDI
     Route: 055
     Dates: start: 20201030, end: 20201030
  6. SALBUTAMOL [Suspect]
     Active Substance: ALBUTEROL
     Dosage: 8 DOSAGE FORM, BID, 8 PUFFS AND ANOTHER 8 PUFFS WITHIN 15 MINS TIME GAP
     Route: 055
     Dates: start: 20201028, end: 20201028
  7. BUDESONIDE. [Concomitant]
     Active Substance: BUDESONIDE
     Indication: ASTHMA
     Dosage: 2 DOSAGE FORM, BID, 2 PUFFS, METERED?DOSE INHALER
     Route: 055
  8. GLICLAZIDE [Concomitant]
     Active Substance: GLICLAZIDE
     Indication: TYPE 2 DIABETES MELLITUS
     Dosage: 40 MILLIGRAM, QD
     Route: 065

REACTIONS (3)
  - Paroxysmal sympathetic hyperactivity [Recovered/Resolved]
  - Dyskinesia [Recovered/Resolved]
  - Overdose [Unknown]

NARRATIVE: CASE EVENT DATE: 20201028
